FAERS Safety Report 5350004-X (Version None)
Quarter: 2007Q2

REPORT INFORMATION
  Report Type: 
  Country: None (occurrence: None)
  Receive Date: 20070607
  Receipt Date: 20070529
  Transmission Date: 20071010
  Serious: Yes (Life-Threatening, Hospitalization)
  Sender: FDA-Public Use
  Company Number: IT-GILEAD-2007-0011147

PATIENT
  Sex: Male

DRUGS (7)
  1. EMTRICITABINE/TENOFOVIR DISOPROXIL FUMARATE [Suspect]
     Indication: HIV INFECTION
     Route: 048
     Dates: start: 20070302
  2. EMTRICITABINE/TENOFOVIR DISOPROXIL FUMARATE [Suspect]
     Route: 048
     Dates: start: 20060706, end: 20070124
  3. ATAZANAVIR SULFATE [Suspect]
     Indication: HIV INFECTION
     Route: 048
     Dates: start: 20070302
  4. ATAZANAVIR SULFATE [Suspect]
     Route: 048
     Dates: start: 20060706, end: 20070124
  5. RITONAVIR [Suspect]
     Indication: HIV INFECTION
     Route: 048
     Dates: start: 20070302
  6. RITONAVIR [Suspect]
     Route: 048
     Dates: start: 20060706, end: 20070124
  7. SILICONE [Suspect]
     Dates: start: 20070125, end: 20070125

REACTIONS (1)
  - HYPERSENSITIVITY [None]
